FAERS Safety Report 22272041 (Version 8)
Quarter: 2023Q4

REPORT INFORMATION
  Report Type: Report from Study
  Country: RS (occurrence: None)
  Receive Date: 20230502
  Receipt Date: 20231124
  Transmission Date: 20240109
  Serious: Yes (Hospitalization)
  Sender: FDA-Public Use
  Company Number: RS-ROCHE-3337662

PATIENT
  Age: 54 Year
  Sex: Male
  Weight: 80 kg

DRUGS (18)
  1. OCRELIZUMAB [Suspect]
     Active Substance: OCRELIZUMAB
     Indication: Primary progressive multiple sclerosis
     Dosage: START DATE OF MOST RECENT DOSE OF STUDY DRUG PRIOR TO SAE 22/AUG/2022, DOSE LAST STUDY DRUG ADMIN PR
     Route: 042
     Dates: start: 20201211
  2. TIZANIDINE [Concomitant]
     Active Substance: TIZANIDINE
     Indication: Multiple sclerosis
     Route: 048
     Dates: start: 20190919, end: 20230308
  3. PREGABALIN [Concomitant]
     Active Substance: PREGABALIN
     Indication: Multiple sclerosis
     Route: 048
     Dates: start: 20191011
  4. MIRTAZAPINE [Concomitant]
     Active Substance: MIRTAZAPINE
     Indication: Depression
     Route: 048
     Dates: start: 20191004, end: 20230308
  5. MIRTAZAPINE [Concomitant]
     Active Substance: MIRTAZAPINE
     Route: 048
     Dates: start: 20230309
  6. OCTENIDINE [Concomitant]
     Active Substance: OCTENIDINE
     Indication: Phimosis
     Route: 061
     Dates: start: 20230321, end: 20230403
  7. MOMETASONE FUROATE [Concomitant]
     Active Substance: MOMETASONE FUROATE
     Indication: Phimosis
     Route: 061
     Dates: start: 20230321, end: 20230403
  8. BACLOFEN [Concomitant]
     Active Substance: BACLOFEN
     Indication: Muscle spasticity
     Route: 008
     Dates: start: 202302, end: 202302
  9. BACLOFEN [Concomitant]
     Active Substance: BACLOFEN
     Indication: Multiple sclerosis
     Route: 048
     Dates: start: 20230309, end: 20230311
  10. BACLOFEN [Concomitant]
     Active Substance: BACLOFEN
     Route: 048
     Dates: start: 20230312, end: 20230314
  11. BACLOFEN [Concomitant]
     Active Substance: BACLOFEN
     Route: 048
     Dates: start: 20230305, end: 20230321
  12. BACLOFEN [Concomitant]
     Active Substance: BACLOFEN
     Route: 048
     Dates: start: 20230322, end: 20230331
  13. BACLOFEN [Concomitant]
     Active Substance: BACLOFEN
     Route: 048
     Dates: start: 20230401, end: 20230410
  14. BACLOFEN [Concomitant]
     Active Substance: BACLOFEN
     Route: 048
     Dates: start: 20230411
  15. BACLOFEN [Concomitant]
     Active Substance: BACLOFEN
     Route: 008
     Dates: start: 20230221, end: 20230221
  16. OCTENISEPT SPRAY [Concomitant]
     Indication: Phimosis
     Route: 061
     Dates: start: 20230321, end: 20230403
  17. PROSCAR [Concomitant]
     Active Substance: FINASTERIDE
     Indication: Benign prostatic hyperplasia
     Route: 048
  18. AMOXICILLIN\CLAVULANIC ACID [Concomitant]
     Active Substance: AMOXICILLIN\CLAVULANIC ACID
     Indication: Bladder catheterisation
     Route: 048
     Dates: start: 20230504, end: 20230508

REACTIONS (1)
  - Urinary tract infection [Recovered/Resolved]

NARRATIVE: CASE EVENT DATE: 20221114
